FAERS Safety Report 4859793-1 (Version None)
Quarter: 2005Q4

REPORT INFORMATION
  Report Type: 
  Country: None (occurrence: None)
  Receive Date: 20051219
  Receipt Date: 20050929
  Transmission Date: 20060501
  Serious: Yes (Other)
  Sender: FDA-Public Use
  Company Number: US-GLAXOSMITHKLINE-A0576412A

PATIENT
  Age: 59 Year
  Sex: Male
  Weight: 108.2 kg

DRUGS (9)
  1. PAROXETINE HCL [Suspect]
     Dosage: 30MG SEE DOSAGE TEXT
     Route: 048
     Dates: start: 20050806, end: 20050916
  2. SENNA [Concomitant]
  3. BETHANECHOL CHLORIDE [Concomitant]
  4. FLOMAX [Concomitant]
  5. SPIRONOLACTONE [Concomitant]
  6. COLACE [Concomitant]
  7. CITALOPRAM HYDROBROMIDE [Concomitant]
     Dosage: 10MG PER DAY
     Route: 048
  8. CARISOPRODOL [Concomitant]
  9. METHADONE HCL [Concomitant]

REACTIONS (6)
  - DRUG DISPENSING ERROR [None]
  - FEAR [None]
  - FEELING COLD [None]
  - MEDICATION ERROR [None]
  - SEROTONIN SYNDROME [None]
  - TREMOR [None]
